FAERS Safety Report 6639347-7 (Version None)
Quarter: 2010Q1

REPORT INFORMATION
  Report Type: 
  Country: None (occurrence: None)
  Receive Date: 20100315
  Receipt Date: 20100225
  Transmission Date: 20100710
  Serious: Yes (Death)
  Sender: FDA-Public Use
  Company Number: 2010VX000073

PATIENT
  Age: 57 Year
  Sex: Female

DRUGS (2)
  1. DIASTAT [Suspect]
     Indication: DRUG USE FOR UNKNOWN INDICATION
  2. OXYCODONE [Suspect]
     Indication: DRUG USE FOR UNKNOWN INDICATION

REACTIONS (10)
  - CARDIAC ARREST [None]
  - CEREBRAL INFARCTION [None]
  - DRUG TOXICITY [None]
  - HYPOTENSION [None]
  - HYPOXIC ENCEPHALOPATHY [None]
  - INTENTIONAL DRUG MISUSE [None]
  - POISONING [None]
  - RESPIRATORY ARREST [None]
  - TROPONIN INCREASED [None]
  - UNRESPONSIVE TO STIMULI [None]
